FAERS Safety Report 20289943 (Version 1)
Quarter: 2022Q1

REPORT INFORMATION
  Report Type: Spontaneous
  Country: KR (occurrence: KR)
  Receive Date: 20220104
  Receipt Date: 20220104
  Transmission Date: 20220423
  Serious: Yes (Other)
  Sender: FDA-Public Use
  Company Number: KR-SA-SAC20211230000901

PATIENT

DRUGS (1)
  1. ZOLPIDEM TARTRATE [Suspect]
     Active Substance: ZOLPIDEM TARTRATE
     Dosage: 10 MG
     Route: 048

REACTIONS (9)
  - Drug dependence [Unknown]
  - Fall [Unknown]
  - Feeling abnormal [Unknown]
  - Dizziness [Unknown]
  - Depression [Unknown]
  - Amnesia [Unknown]
  - Asthenia [Unknown]
  - Depressed mood [Unknown]
  - Overdose [Unknown]
